FAERS Safety Report 5761342-0 (Version None)
Quarter: 2008Q2

REPORT INFORMATION
  Report Type: 
  Country: None (occurrence: None)
  Receive Date: 20080606
  Receipt Date: 20080528
  Transmission Date: 20081010
  Serious: Yes (Hospitalization)
  Sender: FDA-Public Use
  Company Number: US-AMGEN-QUU282854

PATIENT
  Age: 40 Year
  Sex: Female

DRUGS (3)
  1. NEULASTA [Suspect]
     Indication: CHEMOTHERAPY
     Route: 058
     Dates: start: 20080515
  2. TAXOTERE [Concomitant]
     Dates: start: 20080514
  3. CYCLOPHOSPHAMIDE [Concomitant]
     Dates: start: 20080514

REACTIONS (2)
  - BONE PAIN [None]
  - FEELING ABNORMAL [None]
